FAERS Safety Report 6286214-7 (Version None)
Quarter: 2009Q3

REPORT INFORMATION
  Report Type: 
  Country: None (occurrence: None)
  Receive Date: 20090716
  Receipt Date: 20080702
  Transmission Date: 20100115
  Serious: No
  Sender: FDA-Public Use
  Company Number: 2007BI006935

PATIENT
  Age: 37 Year
  Sex: Female

DRUGS (1)
  1. AVONEX [Suspect]
     Indication: MULTIPLE SCLEROSIS
     Dosage: 30 UG;QW;IM
     Dates: start: 19991113

REACTIONS (6)
  - GAIT DISTURBANCE [None]
  - HYPOAESTHESIA [None]
  - LOSS OF VISUAL CONTRAST SENSITIVITY [None]
  - MUSCULOSKELETAL STIFFNESS [None]
  - VISION BLURRED [None]
  - VISUAL IMPAIRMENT [None]
